FAERS Safety Report 12477665 (Version 1)
Quarter: 2016Q2

REPORT INFORMATION
  Report Type: Spontaneous
  Country: US (occurrence: US)
  Receive Date: 20160617
  Receipt Date: 20160617
  Transmission Date: 20160815
  Serious: No
  Sender: FDA-Public Use
  Company Number: US-BAYER-2016-119210

PATIENT
  Age: 75 Year
  Sex: Male
  Weight: 86.17 kg

DRUGS (1)
  1. CLARITIN-D 12 HOUR [Suspect]
     Active Substance: LORATADINE\PSEUDOEPHEDRINE SULFATE
     Indication: MYALGIA
     Dosage: 1 DF, ONCE
     Route: 048
     Dates: start: 20160614, end: 20160614

REACTIONS (3)
  - Off label use [None]
  - Insomnia [None]
  - Expired product administered [None]

NARRATIVE: CASE EVENT DATE: 20160614
